FAERS Safety Report 6767553-X (Version None)
Quarter: 2010Q2

REPORT INFORMATION
  Report Type: 
  Country: None (occurrence: None)
  Receive Date: 20100614
  Receipt Date: 20100524
  Transmission Date: 20101027
  Serious: Yes (Life-Threatening, Other)
  Sender: FDA-Public Use
  Company Number: IT-BRISTOL-MYERS SQUIBB COMPANY-15141344

PATIENT
  Age: 57 Year
  Sex: Female

DRUGS (7)
  1. GLUCOPHAGE [Suspect]
     Indication: DIABETES MELLITUS
     Route: 048
     Dates: start: 20070801, end: 20100518
  2. REPAGLINIDE [Suspect]
     Indication: DIABETES MELLITUS
     Route: 048
     Dates: start: 20070801, end: 20100518
  3. MICARDIS HCT [Suspect]
  4. LASIX [Suspect]
  5. OMEPRAZOLE [Concomitant]
  6. PROPAFENONE HCL [Concomitant]
  7. ASPIRIN [Concomitant]

REACTIONS (6)
  - CARDIOGENIC SHOCK [None]
  - DEHYDRATION [None]
  - DIARRHOEA [None]
  - LACTIC ACIDOSIS [None]
  - RENAL FAILURE ACUTE [None]
  - VOMITING [None]
